FAERS Safety Report 21182257 (Version 2)
Quarter: 2022Q4

REPORT INFORMATION
  Report Type: Spontaneous
  Country: US (occurrence: US)
  Receive Date: 20220807
  Receipt Date: 20221101
  Transmission Date: 20230113
  Serious: No
  Sender: FDA-Public Use
  Company Number: US-ORGANON-O2208USA000612

PATIENT

DRUGS (1)
  1. HYZAAR [Suspect]
     Active Substance: HYDROCHLOROTHIAZIDE\LOSARTAN POTASSIUM
     Indication: Blood pressure management
     Dosage: POTENCY: 25/100
     Route: 048

REACTIONS (3)
  - Loss of therapeutic response [Unknown]
  - Suspected counterfeit product [Unknown]
  - Counterfeit product administered [Unknown]
